FAERS Safety Report 16573251 (Version 1)
Quarter: 2019Q3

REPORT INFORMATION
  Report Type: Spontaneous
  Country: US (occurrence: US)
  Receive Date: 20190715
  Receipt Date: 20190715
  Transmission Date: 20191004
  Serious: No
  Sender: FDA-Public Use
  Company Number: US-EPIC PHARMA LLC-2018EPC00475

PATIENT
  Age: 54 Year
  Sex: Female
  Weight: 65.76 kg

DRUGS (8)
  1. ARMOUR THYROID [Concomitant]
     Active Substance: THYROID, PORCINE
     Dosage: 120 MG IN THE MORNING
  2. XANAX XR [Concomitant]
     Active Substance: ALPRAZOLAM
     Dosage: 4 MG 2 HOURS BEFORE BED
  3. INFUSION FOR CROHN^S DISEASE [Concomitant]
  4. XANAX XR [Concomitant]
     Active Substance: ALPRAZOLAM
     Dosage: 2 MG AT BEDTIME
  5. MEPERIDINE HYDROCHLORIDE. [Suspect]
     Active Substance: MEPERIDINE HYDROCHLORIDE
     Indication: NEUROPATHY PERIPHERAL
  6. XANAX [Concomitant]
     Active Substance: ALPRAZOLAM
     Dosage: 3MG UP TO 4X/DAY AS NEEDED
  7. MEPERIDINE HYDROCHLORIDE. [Suspect]
     Active Substance: MEPERIDINE HYDROCHLORIDE
     Indication: PAIN
     Dosage: 200 MG EVERY 4-6 HOURS AS NEEDED
     Route: 048
     Dates: start: 20181012, end: 201810
  8. VERAPAMIL [Concomitant]
     Active Substance: VERAPAMIL HYDROCHLORIDE
     Dosage: UNK UNK, 1X/DAY

REACTIONS (4)
  - Anal incontinence [Recovered/Resolved]
  - Gastrointestinal pain [Recovered/Resolved]
  - Diarrhoea [Recovered/Resolved]
  - Abdominal pain upper [Recovered/Resolved]

NARRATIVE: CASE EVENT DATE: 201810
